FAERS Safety Report 18550031 (Version 1)
Quarter: 2020Q4

REPORT INFORMATION
  Report Type: Spontaneous
  Country: LT (occurrence: LT)
  Receive Date: 20201126
  Receipt Date: 20201126
  Transmission Date: 20210114
  Serious: Yes (Other)
  Sender: FDA-Public Use
  Company Number: NVSC2020LT309883

PATIENT
  Age: 35 Year
  Sex: Female
  Weight: 110 kg

DRUGS (5)
  1. CARBAMAZEPINE. [Suspect]
     Active Substance: CARBAMAZEPINE
     Indication: PRODUCT USED FOR UNKNOWN INDICATION
     Dosage: 200 MG
     Route: 065
     Dates: start: 20201103, end: 20201104
  2. CLONAZEPAM. [Concomitant]
     Active Substance: CLONAZEPAM
     Indication: SCHIZOPHRENIA
     Dosage: 2 MG
     Route: 065
     Dates: start: 20201103, end: 20201104
  3. TIAPRIDAL [Concomitant]
     Active Substance: TIAPRIDE HYDROCHLORIDE
     Indication: SCHIZOPHRENIA
     Dosage: 100 MG
     Route: 065
     Dates: start: 20201103, end: 20201104
  4. OLANZAPINE. [Concomitant]
     Active Substance: OLANZAPINE
     Indication: SCHIZOPHRENIA
     Dosage: 10 MG
     Route: 065
     Dates: start: 20201103, end: 20201104
  5. HALOPERIDOL. [Concomitant]
     Active Substance: HALOPERIDOL
     Indication: SCHIZOPHRENIA
     Dosage: 5 MG
     Route: 065
     Dates: start: 20201103, end: 20201104

REACTIONS (6)
  - Drug abuse [Unknown]
  - Dizziness [Unknown]
  - Vomiting [Unknown]
  - Electrolyte imbalance [Unknown]
  - Nausea [Unknown]
  - Asthenia [Unknown]

NARRATIVE: CASE EVENT DATE: 20201103
